FAERS Safety Report 18493132 (Version 31)
Quarter: 2025Q3

REPORT INFORMATION
  Report Type: Report from Study
  Country: US (occurrence: US)
  Receive Date: 20201111
  Receipt Date: 20250924
  Transmission Date: 20251021
  Serious: Yes (Hospitalization, Other)
  Sender: TAKEDA
  Company Number: US-SHIRE-US202030874

PATIENT
  Sex: Female

DRUGS (4)
  1. HUMAN IMMUNOGLOBULIN G\HYALURONIDASE RECOMBINANT HUMAN [Suspect]
     Active Substance: HUMAN IMMUNOGLOBULIN G\HYALURONIDASE (HUMAN RECOMBINANT)
     Indication: Immunodeficiency common variable
     Dosage: 30 GRAM, MONTHLY
  2. HUMAN IMMUNOGLOBULIN G\HYALURONIDASE RECOMBINANT HUMAN [Suspect]
     Active Substance: HUMAN IMMUNOGLOBULIN G\HYALURONIDASE (HUMAN RECOMBINANT)
     Indication: Primary immunodeficiency syndrome
  3. METHOTREXATE [Suspect]
     Active Substance: METHOTREXATE
     Indication: Product used for unknown indication
  4. STELARA [Suspect]
     Active Substance: USTEKINUMAB
     Indication: Product used for unknown indication

REACTIONS (49)
  - Rheumatoid arthritis [Unknown]
  - Pituitary tumour [Unknown]
  - Pneumonia [Unknown]
  - Developmental hip dysplasia [Unknown]
  - Tendonitis [Unknown]
  - Thirst [Unknown]
  - Herpes zoster [Unknown]
  - Tendon rupture [Unknown]
  - Bursitis [Unknown]
  - Insomnia [Unknown]
  - Abdominal distension [Unknown]
  - Fatigue [Unknown]
  - Muscle injury [Unknown]
  - Peripheral swelling [Unknown]
  - Ocular hyperaemia [Unknown]
  - Arthritis [Unknown]
  - Rash macular [Unknown]
  - Candida infection [Unknown]
  - Cortisol decreased [Unknown]
  - Blood phosphorus abnormal [Unknown]
  - Skin exfoliation [Unknown]
  - Pyrexia [Unknown]
  - Illness [Unknown]
  - Feeling abnormal [Not Recovered/Not Resolved]
  - Connective tissue disorder [Unknown]
  - Irritable bowel syndrome [Unknown]
  - Contusion [Unknown]
  - Stress [Unknown]
  - Skin disorder [Unknown]
  - Atrophy [Unknown]
  - Depressed mood [Unknown]
  - Sinusitis [Recovering/Resolving]
  - Depression [Unknown]
  - Neck pain [Unknown]
  - Meniscus injury [Unknown]
  - Joint dislocation [Unknown]
  - Device malfunction [Unknown]
  - Sinus disorder [Unknown]
  - Incision site swelling [Unknown]
  - Cyst [Unknown]
  - COVID-19 [Unknown]
  - Lymphadenopathy [Unknown]
  - Balance disorder [Unknown]
  - Cough [Unknown]
  - Back injury [Unknown]
  - Dermatitis [Unknown]
  - Malaise [Not Recovered/Not Resolved]
  - Headache [Unknown]
  - Product dose omission issue [Unknown]
